FAERS Safety Report 4278615-3 (Version None)
Quarter: 2004Q1

REPORT INFORMATION
  Report Type: 
  Country: None (occurrence: None)
  Receive Date: 20040122
  Receipt Date: 20040122
  Transmission Date: 20041129
  Serious: Yes (Hospitalization)
  Sender: FDA-Public Use
  Company Number: None

PATIENT
  Age: 70 Year
  Sex: Male
  Weight: 100 kg

DRUGS (3)
  1. CLOZAPINE [Suspect]
     Indication: MEDICATION ERROR
     Dosage: 300 MG ONCE ORAL
     Route: 048
     Dates: start: 20031117, end: 20031118
  2. TOPIRAMATE [Suspect]
     Indication: MEDICATION ERROR
     Dosage: 200 MG BID ORAL
     Route: 048
     Dates: start: 20031117, end: 20031118
  3. LORAZEPAM [Concomitant]

REACTIONS (2)
  - MEDICATION ERROR [None]
  - MENTAL STATUS CHANGES [None]
